FAERS Safety Report 13978421 (Version 14)
Quarter: 2018Q3

REPORT INFORMATION
  Report Type: Spontaneous
  Country: US (occurrence: US)
  Receive Date: 20170915
  Receipt Date: 20180702
  Transmission Date: 20181010
  Serious: Yes (Death, Hospitalization)
  Sender: FDA-Public Use
  Company Number: US-ACTELION-A-NJ2017-159421

PATIENT
  Age: 63 Year
  Sex: Female
  Weight: 60.77 kg

DRUGS (5)
  1. REMODULIN [Concomitant]
     Active Substance: TREPROSTINIL
     Dosage: 60 NG/KG, UNK
  2. OXYGEN. [Concomitant]
     Active Substance: OXYGEN
  3. OPSUMIT [Suspect]
     Active Substance: MACITENTAN
     Indication: PULMONARY HYPERTENSION
     Dosage: 10 MG, QD
     Route: 048
  4. REMODULIN [Concomitant]
     Active Substance: TREPROSTINIL
     Dosage: 77 NG/KG, PER MIN
  5. SILDENAFIL CITRATE. [Concomitant]
     Active Substance: SILDENAFIL CITRATE

REACTIONS (20)
  - Sepsis [Fatal]
  - Diarrhoea [Unknown]
  - Oedema peripheral [Unknown]
  - Respiratory failure [Unknown]
  - Application site erythema [Unknown]
  - Acquired immunodeficiency syndrome [Fatal]
  - Renal failure [Unknown]
  - Pulmonary embolism [Unknown]
  - Blood count abnormal [Unknown]
  - Oedema [Unknown]
  - Localised oedema [Unknown]
  - Hypotension [Unknown]
  - Ascites [Unknown]
  - Dyspnoea [Unknown]
  - Upper gastrointestinal haemorrhage [Unknown]
  - Hypoxia [Unknown]
  - Application site pruritus [Unknown]
  - Pulmonary hypertension [Fatal]
  - Asthenia [Unknown]
  - Thrombocytopenia [Unknown]
